FAERS Safety Report 10908514 (Version 1)
Quarter: 2015Q1

REPORT INFORMATION
  Report Type: Spontaneous
  Country: US (occurrence: None)
  Receive Date: 20150309
  Receipt Date: 20150309
  Transmission Date: 20150721
  Serious: Yes (Hospitalization, Disabling)
  Sender: FDA-Public Use
  Company Number: None

PATIENT
  Age: 52 Year
  Sex: Female
  Weight: 81.65 kg

DRUGS (11)
  1. BRINTELLIX [Suspect]
     Active Substance: VORTIOXETINE HYDROBROMIDE
     Indication: POST-TRAUMATIC STRESS DISORDER
     Dosage: 1 PILL, ONCE DAILY, TAKEN BY MOUTH
     Route: 048
     Dates: start: 20150223, end: 20150226
  2. BIOTIN (SOMETIMES) [Concomitant]
  3. CHAMOMILE TEA [Concomitant]
     Active Substance: MATRICARIA RECUTITA
  4. ONE-A-DAY VITAMIN [Concomitant]
  5. CALCIUM  AND D SUPPLEMENT [Concomitant]
  6. PAXIL CR [Concomitant]
     Active Substance: PAROXETINE HYDROCHLORIDE
  7. HERBAL ICED TEA [Concomitant]
  8. MOTRIN [Concomitant]
     Active Substance: IBUPROFEN
  9. ALPRAZOLAM. [Concomitant]
     Active Substance: ALPRAZOLAM
  10. ONE-A-DAY SOMENS [Concomitant]
  11. TEA [Concomitant]
     Active Substance: TEA LEAF

REACTIONS (21)
  - Dry mouth [None]
  - Headache [None]
  - Pruritus [None]
  - Flashback [None]
  - Dizziness [None]
  - Weight decreased [None]
  - Amnesia [None]
  - Heart rate irregular [None]
  - Vertigo [None]
  - Fatigue [None]
  - Thirst [None]
  - Pyrexia [None]
  - Balance disorder [None]
  - Heart rate increased [None]
  - Eructation [None]
  - Fear [None]
  - Deafness transitory [None]
  - Tremor [None]
  - Disturbance in attention [None]
  - Nightmare [None]
  - Deafness unilateral [None]

NARRATIVE: CASE EVENT DATE: 20150223
